FAERS Safety Report 25958426 (Version 1)
Quarter: 2025Q4

REPORT INFORMATION
  Report Type: Spontaneous
  Country: GB (occurrence: GB)
  Receive Date: 20251024
  Receipt Date: 20251024
  Transmission Date: 20260117
  Serious: Yes (Hospitalization, Other)
  Sender: GALPHARM INTERNATIONAL
  Company Number: None

PATIENT
  Age: 34 Year
  Sex: Female

DRUGS (1)
  1. NAPROXEN [Suspect]
     Active Substance: NAPROXEN
     Indication: Back pain
     Dosage: 250MG  TWICE DAILY
     Route: 065

REACTIONS (1)
  - Angioedema [Not Recovered/Not Resolved]
